FAERS Safety Report 6257398-1 (Version None)
Quarter: 2009Q3

REPORT INFORMATION
  Report Type: 
  Country: None (occurrence: None)
  Receive Date: 20090706
  Receipt Date: 20090615
  Transmission Date: 20100115
  Serious: Yes (Other)
  Sender: FDA-Public Use
  Company Number: IT-MERCK-0906ITA00030

PATIENT
  Age: 84 Year
  Sex: Male

DRUGS (3)
  1. ZOCOR [Suspect]
     Indication: HYPERCHOLESTEROLAEMIA
     Route: 048
     Dates: start: 20030225, end: 20090202
  2. IRBESARTAN [Suspect]
     Indication: HYPERTENSION
     Route: 048
     Dates: start: 20010101, end: 20090202
  3. ALUMINUM HYDROXIDE AND ASPIRIN AND MAGNESIUM HYDROXIDE [Suspect]
     Indication: ANTIPLATELET THERAPY
     Route: 048
     Dates: start: 20020411, end: 20090202

REACTIONS (1)
  - HEPATIC NEOPLASM MALIGNANT [None]
